FAERS Safety Report 4504283-9 (Version None)
Quarter: 2004Q4

REPORT INFORMATION
  Report Type: 
  Country: None (occurrence: None)
  Receive Date: 20041116
  Receipt Date: 20041116
  Transmission Date: 20050328
  Serious: Yes (Death)
  Sender: FDA-Public Use
  Company Number: None

PATIENT
  Age: 57 Year
  Sex: Female
  Weight: 80.7403 kg

DRUGS (2)
  1. TRINOTECAN [Suspect]
     Indication: CERVIX CANCER METASTATIC
     Dosage: 100 MG/M2-IV-ONCE/WK X 2 WKS
     Route: 042
     Dates: start: 20040122, end: 20040129
  2. CAPECITABINE [Suspect]
     Dosage: 2000 MG/M2 -PO /DAYS 1-14
     Route: 048
     Dates: start: 20040122, end: 20040130

REACTIONS (1)
  - DISEASE PROGRESSION [None]
